FAERS Safety Report 4693064-1 (Version None)
Quarter: 2005Q2

REPORT INFORMATION
  Report Type: 
  Country: None (occurrence: None)
  Receive Date: 20050613
  Receipt Date: 20050412
  Transmission Date: 20051028
  Serious: Yes (Hospitalization)
  Sender: FDA-Public Use
  Company Number: WSDF_00471

PATIENT
  Age: 71 Year
  Sex: Male

DRUGS (5)
  1. WINRHO SDF [Suspect]
     Indication: IDIOPATHIC THROMBOCYTOPENIC PURPURA
     Dosage: 75 MCG/KG ONCE IV
     Route: 042
     Dates: start: 20050411, end: 20050411
  2. PREDNISONE TAB [Concomitant]
  3. SYNTHROID [Concomitant]
  4. PAXIL [Concomitant]
  5. PLAQUENIL [Concomitant]

REACTIONS (7)
  - BACK PAIN [None]
  - CHILLS [None]
  - HAEMOGLOBIN DECREASED [None]
  - HAEMOLYSIS [None]
  - LUNG NEOPLASM MALIGNANT [None]
  - PAIN IN EXTREMITY [None]
  - WHEEZING [None]
